FAERS Safety Report 6611929-8 (Version None)
Quarter: 2010Q1

REPORT INFORMATION
  Report Type: 
  Country: None (occurrence: None)
  Receive Date: 20100226
  Receipt Date: 20100226
  Transmission Date: 20100710
  Serious: No
  Sender: FDA-Public Use
  Company Number: None

PATIENT
  Age: 38 Year
  Sex: Female
  Weight: 104.3273 kg

DRUGS (3)
  1. ROLAIDS TAB [Suspect]
     Indication: ABDOMINAL PAIN UPPER
     Dosage: 4 HOURLY PO
     Route: 048
     Dates: start: 20100121, end: 20100126
  2. ROLAIDS TAB [Suspect]
     Indication: DIARRHOEA
     Dosage: 4 HOURLY PO
     Route: 048
     Dates: start: 20100121, end: 20100126
  3. ROLAIDS TAB [Suspect]
     Indication: DYSPEPSIA
     Dosage: 4 HOURLY PO
     Route: 048
     Dates: start: 20100121, end: 20100126

REACTIONS (4)
  - ABDOMINAL PAIN UPPER [None]
  - DIARRHOEA [None]
  - MALAISE [None]
  - VOMITING [None]
